FAERS Safety Report 6223368-2 (Version None)
Quarter: 2009Q2

REPORT INFORMATION
  Report Type: 
  Country: None (occurrence: None)
  Receive Date: 20090611
  Receipt Date: 20090529
  Transmission Date: 20091009
  Serious: Yes (Other)
  Sender: FDA-Public Use
  Company Number: US-ELI_LILLY_AND_COMPANY-US200704006599

PATIENT
  Sex: Female
  Weight: 81.179 kg

DRUGS (24)
  1. FORTEO [Suspect]
     Indication: OSTEOPOROSIS
     Dosage: 20 UG, DAILY (1/D)
     Dates: start: 20060101
  2. FORTEO [Suspect]
     Dosage: 20 UG, DAILY (1/D)
  3. HYDROCODONE BITARTRATE [Concomitant]
     Indication: OSTEOARTHRITIS
     Dosage: UNK, UNK
  4. NORTRIPTYLINE /00006501/ [Concomitant]
     Dosage: 25 MG, 4/D
  5. ALLEGRA [Concomitant]
     Dosage: UNK, UNK
  6. ENABLEX                            /01760402/ [Concomitant]
     Dosage: 7.5 MG, DAILY (1/D)
  7. ESTRADIOL [Concomitant]
     Dosage: 0.5 MG, DAILY (1/D)
  8. NEXIUM [Concomitant]
     Dosage: 40 MG, DAILY (1/D)
  9. NYSTATIN [Concomitant]
  10. GLYCOLAX [Concomitant]
  11. CRESTOR [Concomitant]
     Indication: BLOOD CHOLESTEROL
     Dosage: 10 MG, EACH EVENING
  12. PREVACID [Concomitant]
     Dosage: 30 MG, EACH MORNING
  13. DIFLUCAN [Concomitant]
     Dosage: 150 MG, DAILY (1/D)
  14. CARISOPRODOL [Concomitant]
     Dosage: 350 MG, 3/D
  15. ZANTAC [Concomitant]
     Dosage: 300 UNK, DAILY (1/D)
  16. ZELNORM [Concomitant]
     Indication: GASTROINTESTINAL DISORDER
     Dosage: 6 MG, 2/D
     Dates: end: 20070414
  17. DETROL [Concomitant]
     Dosage: 4 MG, EACH EVENING
  18. CLIMARA [Concomitant]
     Dosage: 0.1 MG, UNK
  19. LORAZEPAM [Concomitant]
     Dosage: 1 MG, 3/D
  20. VITAMIN B-12 [Concomitant]
  21. AMBIEN [Concomitant]
     Dosage: 12.5 MG, EACH EVENING
  22. LIPITOR [Concomitant]
     Dosage: 10 MG, UNK
  23. NITROGLYCERIN [Concomitant]
  24. AMLODIPINE BESYLATE [Concomitant]
     Dosage: 25 MG, UNK

REACTIONS (38)
  - ACUTE SINUSITIS [None]
  - ALTERED STATE OF CONSCIOUSNESS [None]
  - ANAEMIA VITAMIN B12 DEFICIENCY [None]
  - ARTHROPATHY [None]
  - BLADDER CANCER RECURRENT [None]
  - BONE DISORDER [None]
  - CHEST PAIN [None]
  - CONDITION AGGRAVATED [None]
  - CONTUSION [None]
  - COUGH [None]
  - DIPLOPIA [None]
  - DIZZINESS [None]
  - DRY THROAT [None]
  - DYSPHONIA [None]
  - ESSENTIAL HYPERTENSION [None]
  - FALL [None]
  - FATIGUE [None]
  - GAIT DISTURBANCE [None]
  - GASTROOESOPHAGEAL REFLUX DISEASE [None]
  - HIP FRACTURE [None]
  - HYPOGLYCAEMIA [None]
  - INTRINSIC FACTOR ANTIBODY NEGATIVE [None]
  - JOINT SWELLING [None]
  - LOSS OF CONSCIOUSNESS [None]
  - MALAISE [None]
  - NECK PAIN [None]
  - OSTEOARTHRITIS [None]
  - PAIN IN EXTREMITY [None]
  - PALPITATIONS [None]
  - PATHOLOGICAL FRACTURE [None]
  - PHARYNGEAL DISORDER [None]
  - POLYP [None]
  - POSTURE ABNORMAL [None]
  - PRODUCT QUALITY ISSUE [None]
  - VENTRICULAR EXTRASYSTOLES [None]
  - VITAMIN B12 DEFICIENCY [None]
  - VITAMIN D DEFICIENCY [None]
  - WEIGHT INCREASED [None]
